FAERS Safety Report 12962125 (Version 2)
Quarter: 2016Q4

REPORT INFORMATION
  Report Type: Spontaneous
  Country: GB (occurrence: GB)
  Receive Date: 20161121
  Receipt Date: 20161129
  Transmission Date: 20170207
  Serious: Yes (Hospitalization, Other)
  Sender: FDA-Public Use
  Company Number: GB-VIIV HEALTHCARE LIMITED-GB2016GSK170051

PATIENT
  Sex: Male

DRUGS (2)
  1. MARAVIROC [Suspect]
     Active Substance: MARAVIROC
     Indication: PRODUCT USED FOR UNKNOWN INDICATION
  2. TIVICAY [Suspect]
     Active Substance: DOLUTEGRAVIR SODIUM
     Indication: PRODUCT USED FOR UNKNOWN INDICATION

REACTIONS (2)
  - Hip fracture [Unknown]
  - Fall [Unknown]
